FAERS Safety Report 9368827 (Version 2)
Quarter: 2013Q3

REPORT INFORMATION
  Report Type: Report from Study
  Country: JP (occurrence: JP)
  Receive Date: 20130626
  Receipt Date: 20130809
  Transmission Date: 20140515
  Serious: Yes (Other)
  Sender: FDA-Public Use
  Company Number: JP-ROCHE-1241095

PATIENT
  Age: 82 Year
  Sex: Male
  Weight: 53 kg

DRUGS (13)
  1. METHOXY POLYETHYLENE GLYCOL-EPOETIN BETA [Suspect]
     Indication: NEPHROGENIC ANAEMIA
     Route: 058
     Dates: start: 20111227, end: 20120626
  2. METHOXY POLYETHYLENE GLYCOL-EPOETIN BETA [Suspect]
     Indication: NEPHROGENIC ANAEMIA
     Route: 058
     Dates: start: 20120710, end: 20120904
  3. KALIMATE [Concomitant]
     Indication: NEPHROSCLEROSIS
     Route: 048
     Dates: end: 20120930
  4. KREMEZIN [Concomitant]
     Indication: NEPHROSCLEROSIS
     Route: 048
     Dates: start: 20111019, end: 20120930
  5. PROTECADIN [Concomitant]
     Route: 048
     Dates: start: 20111019, end: 20120930
  6. URIEF [Concomitant]
     Route: 048
     Dates: start: 20111027, end: 20120930
  7. MYSLEE [Concomitant]
     Route: 048
     Dates: start: 20111104, end: 20120930
  8. DIOVAN [Concomitant]
     Route: 048
     Dates: start: 20111109, end: 20120709
  9. DIOVAN [Concomitant]
     Route: 048
     Dates: start: 20120710, end: 20120930
  10. ALOSENN [Concomitant]
     Route: 048
     Dates: start: 20111109, end: 20120710
  11. D-SORBITOL [Concomitant]
     Route: 048
     Dates: start: 20111121, end: 20120930
  12. DIOCTYL SODIUM SULFOSUCCINATE [Concomitant]
     Route: 048
     Dates: start: 20120821, end: 20120930
  13. ADALAT CR [Concomitant]
     Indication: HYPERTENSION
     Route: 048
     Dates: start: 20120821, end: 20120904

REACTIONS (2)
  - Paresis [Unknown]
  - Hypertension [Unknown]
